FAERS Safety Report 6695304-6 (Version None)
Quarter: 2010Q2

REPORT INFORMATION
  Report Type: 
  Country: None (occurrence: None)
  Receive Date: 20100423
  Receipt Date: 20100414
  Transmission Date: 20101027
  Serious: Yes (Other)
  Sender: FDA-Public Use
  Company Number: US-ABBOTT-10P-163-0638344-00

PATIENT
  Sex: Female

DRUGS (4)
  1. SYNTHROID [Suspect]
     Indication: THYROID DISORDER
  2. LIPITOR [Suspect]
     Indication: BLOOD CHOLESTEROL INCREASED
  3. LIPITOR [Suspect]
  4. LIPITOR [Suspect]
     Dates: start: 20100101

REACTIONS (5)
  - ANGINA PECTORIS [None]
  - EXPIRED DRUG ADMINISTERED [None]
  - THYROID DISORDER [None]
  - THYROID NEOPLASM [None]
  - UNEVALUABLE EVENT [None]
